FAERS Safety Report 15166602 (Version 2)
Quarter: 2018Q3

REPORT INFORMATION
  Report Type: Spontaneous
  Country: US (occurrence: US)
  Receive Date: 20180719
  Receipt Date: 20180727
  Transmission Date: 20181010
  Serious: No
  Sender: FDA-Public Use
  Company Number: US-TEVA-2018-US-927913

PATIENT
  Sex: Female

DRUGS (2)
  1. ESCITALOPRAM [Suspect]
     Active Substance: ESCITALOPRAM OXALATE
     Dosage: DECREASED FROM 10 MG TO 5 MG
     Dates: start: 20180625
  2. ESCITALOPRAM [Suspect]
     Active Substance: ESCITALOPRAM OXALATE
     Indication: DEPRESSION
     Dates: start: 201804, end: 20180705

REACTIONS (2)
  - Pain [Not Recovered/Not Resolved]
  - Tetany [Unknown]

NARRATIVE: CASE EVENT DATE: 201804
